FAERS Safety Report 4738473-7 (Version None)
Quarter: 2005Q3

REPORT INFORMATION
  Report Type: 
  Country: None (occurrence: None)
  Receive Date: 20050809
  Receipt Date: 20050730
  Transmission Date: 20060218
  Serious: Yes (Hospitalization)
  Sender: FDA-Public Use
  Company Number: BR-JNJFOC-20050800796

PATIENT
  Age: 5 Year
  Sex: Male
  Weight: 14 kg

DRUGS (1)
  1. HALDOL [Suspect]
     Route: 048

REACTIONS (3)
  - ACCIDENTAL EXPOSURE [None]
  - AGITATION [None]
  - TREMOR [None]
